FAERS Safety Report 5862424-5 (Version None)
Quarter: 2008Q3

REPORT INFORMATION
  Report Type: 
  Country: None (occurrence: None)
  Receive Date: 20080827
  Receipt Date: 20080827
  Transmission Date: 20090109
  Serious: Yes (Life-Threatening, Disabling, Other)
  Sender: FDA-Public Use
  Company Number: None

PATIENT
  Sex: Male
  Weight: 63.5036 kg

DRUGS (1)
  1. FLUOXETINE [Suspect]
     Indication: DEPRESSION
     Dosage: 20MG DAILY ORAL
     Route: 048
     Dates: start: 20040101, end: 20080101

REACTIONS (30)
  - ANGER [None]
  - ANHEDONIA [None]
  - ANORGASMIA [None]
  - ANXIETY [None]
  - BALANCE DISORDER [None]
  - CARDIOVASCULAR DISORDER [None]
  - CONDITION AGGRAVATED [None]
  - COORDINATION ABNORMAL [None]
  - CRYING [None]
  - DANDRUFF [None]
  - DELIRIUM [None]
  - DEPERSONALISATION [None]
  - DEPRESSION [None]
  - DYSKINESIA [None]
  - EMOTIONAL DISORDER [None]
  - EYE MOVEMENT DISORDER [None]
  - HALLUCINATION [None]
  - LIBIDO DECREASED [None]
  - MYALGIA [None]
  - PAIN [None]
  - PANIC ATTACK [None]
  - POVERTY OF THOUGHT CONTENT [None]
  - PSYCHIATRIC SYMPTOM [None]
  - QUALITY OF LIFE DECREASED [None]
  - SENSORY DISTURBANCE [None]
  - SKIN DISORDER [None]
  - SOCIAL PROBLEM [None]
  - SPEECH DISORDER [None]
  - SUICIDAL IDEATION [None]
  - VISION BLURRED [None]
